FAERS Safety Report 5266926-4 (Version None)
Quarter: 2007Q1

REPORT INFORMATION
  Report Type: 
  Country: None (occurrence: None)
  Receive Date: 20070316
  Receipt Date: 20070305
  Transmission Date: 20070707
  Serious: Yes (Death, Other)
  Sender: FDA-Public Use
  Company Number: AU-NOVOPROD-261409

PATIENT
  Age: 70 Year
  Sex: Male
  Weight: 90 kg

DRUGS (3)
  1. NOVOSEVEN [Suspect]
     Indication: DRUG USE FOR UNKNOWN INDICATION
     Dosage: 7.2 MG, UNK
     Route: 042
     Dates: start: 20060911
  2. NOVOSEVEN [Suspect]
     Dosage: 7.2 MG, UNK
     Route: 042
     Dates: start: 20060912
  3. ASPIRIN [Concomitant]
     Dates: start: 20050903

REACTIONS (1)
  - DEEP VEIN THROMBOSIS [None]
